FAERS Safety Report 5048053-4 (Version None)
Quarter: 2006Q3

REPORT INFORMATION
  Report Type: 
  Country: None (occurrence: None)
  Receive Date: 20060710
  Receipt Date: 20060710
  Transmission Date: 20061208
  Serious: Yes (Other)
  Sender: FDA-Public Use
  Company Number: None

PATIENT
  Age: 35 Year
  Sex: Female
  Weight: 72.5755 kg

DRUGS (6)
  1. TOPAMAX [Suspect]
     Indication: HEADACHE
     Dosage: 25MG     ONCE DAILY   ORALLY
     Route: 048
     Dates: start: 20060618, end: 20060627
  2. SYNTHROID [Concomitant]
  3. ULTRAM [Concomitant]
  4. LIPITOR [Concomitant]
  5. FIORICET [Concomitant]
  6. TRAZODONE HCL [Concomitant]

REACTIONS (4)
  - ASTHENOPIA [None]
  - EYE PAIN [None]
  - VISION BLURRED [None]
  - VISUAL DISTURBANCE [None]
